FAERS Safety Report 14391450 (Version 3)
Quarter: 2018Q1

REPORT INFORMATION
  Report Type: Report from Study
  Country: JP (occurrence: JP)
  Receive Date: 20180116
  Receipt Date: 20180228
  Transmission Date: 20180509
  Serious: Yes (Hospitalization)
  Sender: FDA-Public Use
  Company Number: JP-TEVA-2018-JP-846629

PATIENT
  Age: 34 Year
  Sex: Male

DRUGS (1)
  1. GLATIRAMER ACETATE. [Suspect]
     Active Substance: GLATIRAMER ACETATE
     Indication: MULTIPLE SCLEROSIS
     Dosage: 20 MILLIGRAM DAILY;
     Route: 058
     Dates: start: 20171227

REACTIONS (2)
  - Fall [Recovered/Resolved]
  - Femur fracture [Recovered/Resolved]

NARRATIVE: CASE EVENT DATE: 20180103
